FAERS Safety Report 6330815-4 (Version None)
Quarter: 2009Q3

REPORT INFORMATION
  Report Type: 
  Country: None (occurrence: None)
  Receive Date: 20090827
  Receipt Date: 20090824
  Transmission Date: 20100115
  Serious: Yes (Disabling)
  Sender: FDA-Public Use
  Company Number: PHHY2009DK35537

PATIENT
  Sex: Female
  Weight: 62 kg

DRUGS (2)
  1. SANDIMMUNE [Suspect]
     Dosage: UNK
  2. PROGRAF [Concomitant]

REACTIONS (1)
  - PSEUDOPORPHYRIA [None]
